FAERS Safety Report 6940507-6 (Version None)
Quarter: 2010Q3

REPORT INFORMATION
  Report Type: 
  Country: None (occurrence: None)
  Receive Date: 20100825
  Receipt Date: 20100818
  Transmission Date: 20110219
  Serious: Yes (Other)
  Sender: FDA-Public Use
  Company Number: US-BAYER-201036672GPV

PATIENT
  Age: 68 Year
  Sex: Male

DRUGS (6)
  1. NAPROXEN [Suspect]
     Indication: PAIN
  2. QUINAPRIL [Suspect]
     Indication: PRODUCT USED FOR UNKNOWN INDICATION
  3. TAMSULOSIN HYDROCHLORIDE [Concomitant]
  4. OMEPRAZOLE [Concomitant]
  5. COLCHICINE [Concomitant]
  6. ACETAMINOPHEN [Concomitant]
     Indication: PAIN
     Route: 048

REACTIONS (1)
  - ANGIOEDEMA [None]
